FAERS Safety Report 18796504 (Version 3)
Quarter: 2022Q2

REPORT INFORMATION
  Report Type: Spontaneous
  Country: IN (occurrence: IN)
  Receive Date: 20210127
  Receipt Date: 20220426
  Transmission Date: 20220721
  Serious: Yes (Other)
  Sender: FDA-Public Use
  Company Number: NVSC2021IN017122

PATIENT
  Age: 62 Year
  Sex: Female

DRUGS (2)
  1. BROLUCIZUMAB [Suspect]
     Active Substance: BROLUCIZUMAB
     Indication: Polypoidal choroidal vasculopathy
     Dosage: UNK UNK, ONCE/SINGLE
     Route: 031
     Dates: start: 20201029
  2. ZALTRAP [Suspect]
     Active Substance: ZIV-AFLIBERCEPT
     Indication: Polypoidal choroidal vasculopathy
     Dosage: UNK
     Route: 031

REACTIONS (8)
  - Blindness transient [Recovered/Resolved]
  - Vitritis [Recovered/Resolved]
  - Hypopyon [Unknown]
  - Eye inflammation [Recovered/Resolved]
  - Non-infectious endophthalmitis [Recovered/Resolved]
  - Erythema [Unknown]
  - Eye pain [Unknown]
  - Product use in unapproved indication [Unknown]

NARRATIVE: CASE EVENT DATE: 20201030
